FAERS Safety Report 25265473 (Version 1)
Quarter: 2025Q2

REPORT INFORMATION
  Report Type: Spontaneous
  Country: GB (occurrence: GB)
  Receive Date: 20250502
  Receipt Date: 20250502
  Transmission Date: 20250716
  Serious: Yes (Hospitalization, Other)
  Sender: PFIZER
  Company Number: GB-PFIZER INC-PV202500052248

PATIENT
  Age: 73 Year
  Sex: Female

DRUGS (6)
  1. ELRANATAMAB [Suspect]
     Active Substance: ELRANATAMAB
     Indication: Plasma cell myeloma
     Dates: start: 20240729
  2. ELRANATAMAB [Suspect]
     Active Substance: ELRANATAMAB
     Dates: start: 20240802
  3. ELRANATAMAB [Suspect]
     Active Substance: ELRANATAMAB
     Dates: start: 20240805
  4. ELRANATAMAB [Suspect]
     Active Substance: ELRANATAMAB
     Dosage: CYCLE 1, WEEKLY
  5. ELRANATAMAB [Suspect]
     Active Substance: ELRANATAMAB
  6. ELRANATAMAB [Suspect]
     Active Substance: ELRANATAMAB
     Dosage: CYCLE 4, MONTHLY

REACTIONS (12)
  - Cytokine release syndrome [Unknown]
  - Atrial fibrillation [Unknown]
  - Neutropenia [Unknown]
  - Pneumonia [Unknown]
  - Hypoxia [Unknown]
  - Influenza [Unknown]
  - Weight increased [Unknown]
  - Urinary tract infection [Unknown]
  - Weight decreased [Unknown]
  - Fatigue [Unknown]
  - Oral candidiasis [Unknown]
  - Off label use [Unknown]

NARRATIVE: CASE EVENT DATE: 20241001
